FAERS Safety Report 21577304 (Version 6)
Quarter: 2023Q2

REPORT INFORMATION
  Report Type: Spontaneous
  Country: US (occurrence: US)
  Receive Date: 20221110
  Receipt Date: 20230419
  Transmission Date: 20230722
  Serious: Yes (Other)
  Sender: FDA-Public Use
  Company Number: US-BRISTOL-MYERS SQUIBB COMPANY-2022-135381

PATIENT
  Age: 71 Year
  Sex: Male

DRUGS (5)
  1. REVLIMID [Suspect]
     Active Substance: LENALIDOMIDE
     Indication: Plasma cell myeloma
     Dosage: DAILY
     Route: 048
     Dates: start: 202207, end: 20221101
  2. REVLIMID [Suspect]
     Active Substance: LENALIDOMIDE
     Indication: Lymphoma
     Dosage: FREQ: 3 WEEKS ON /1 WEEK OFF
     Route: 048
     Dates: start: 20220623, end: 20221228
  3. RITUXAN [Concomitant]
     Active Substance: RITUXIMAB
     Indication: Lymphoma
     Route: 042
     Dates: start: 20220623, end: 20221026
  4. TAZEMETOSTAT [Concomitant]
     Active Substance: TAZEMETOSTAT
     Indication: Lymphoma
     Route: 048
     Dates: start: 20220623, end: 20221228
  5. ZOMETA [Concomitant]
     Active Substance: ZOLEDRONIC ACID
     Indication: Hypercalcaemia
     Route: 048
     Dates: start: 20220630

REACTIONS (2)
  - Rash [Recovered/Resolved]
  - Non-small cell lung cancer [Unknown]
